FAERS Safety Report 10008937 (Version 2)
Quarter: 2014Q1

REPORT INFORMATION
  Report Type: Spontaneous
  Country: US (occurrence: US)
  Receive Date: 20140313
  Receipt Date: 20140313
  Transmission Date: 20141002
  Serious: Yes (Other)
  Sender: FDA-Public Use
  Company Number: US-INCYTE CORPORATION-2012IN000619

PATIENT
  Age: 84 Year
  Sex: Female
  Weight: 67 kg

DRUGS (7)
  1. JAKAFI [Suspect]
     Indication: MYELOFIBROSIS
     Dosage: 20 MG, BID
     Route: 048
     Dates: start: 201202
  2. JAKAFI [Suspect]
     Indication: THROMBOSIS
  3. JAKAFI [Suspect]
     Indication: BONE MARROW FAILURE
  4. SYNTHROID [Concomitant]
     Dosage: 150 MCG, QD
     Route: 048
  5. LASIX [Concomitant]
     Dosage: 40 MG, QD
     Route: 048
  6. ASPIRIN [Concomitant]
     Dosage: 81 MG, UNK
     Route: 048
  7. IRON [Concomitant]

REACTIONS (2)
  - Haemoglobin decreased [Recovered/Resolved]
  - Haematocrit decreased [Unknown]
